FAERS Safety Report 24090762 (Version 1)
Quarter: 2024Q3

REPORT INFORMATION
  Report Type: Report from Study
  Country: CA (occurrence: CA)
  Receive Date: 20240715
  Receipt Date: 20240715
  Transmission Date: 20241017
  Serious: Yes (Death, Other)
  Sender: IPSEN
  Company Number: CA-IPSEN Group, Research and Development-2024-13834

PATIENT
  Age: 71 Year
  Sex: Female

DRUGS (16)
  1. LANREOTIDE ACETATE [Suspect]
     Active Substance: LANREOTIDE ACETATE
     Indication: Gastroenteropancreatic neuroendocrine tumour disease
     Dosage: DEEP SUBCUTANEOUS
     Route: 058
     Dates: start: 20190904
  2. PPSORIASIS CREAM [Concomitant]
  3. CHOLECALCIFEROL [Concomitant]
     Active Substance: CHOLECALCIFEROL
  4. ACETAMINOPHEN [Concomitant]
     Active Substance: ACETAMINOPHEN
     Dosage: 325 MG 2TABS QID
  5. APIXABAN [Concomitant]
     Active Substance: APIXABAN
  6. APREMILAST [Concomitant]
     Active Substance: APREMILAST
  7. BISACODYL [Concomitant]
     Active Substance: BISACODYL
     Dosage: PRN
  8. FENTANYL TRANSDERMAL SYSTEM [Concomitant]
     Active Substance: FENTANYL
  9. FOLIC ACID [Concomitant]
     Active Substance: FOLIC ACID
     Dosage: 5MG PO DIE
     Route: 048
  10. DILAUDID [Concomitant]
     Active Substance: HYDROMORPHONE HYDROCHLORIDE
     Dosage: PRN
  11. LORAZEPAM [Concomitant]
     Active Substance: LORAZEPAM
     Dosage: PRN
  12. NYSTATIN [Concomitant]
     Active Substance: NYSTATIN
     Dosage: 500 000U PO QID
     Route: 048
  13. PANTOPRAZOLE SODIUM [Concomitant]
     Active Substance: PANTOPRAZOLE SODIUM
     Route: 048
  14. POLYETHYLENE GLYCOL 3350 [Concomitant]
     Active Substance: POLYETHYLENE GLYCOL 3350
     Dosage: 17G PO DIE,
     Route: 048
  15. LYRICA [Concomitant]
     Active Substance: PREGABALIN
     Dosage: 17G PO DIE,
     Route: 048
  16. SENNOKOT [Concomitant]
     Dosage: PRN

REACTIONS (2)
  - Death [Fatal]
  - Off label use [Unknown]

NARRATIVE: CASE EVENT DATE: 20240607
